FAERS Safety Report 7883678-X (Version None)
Quarter: 2011Q4

REPORT INFORMATION
  Report Type: 
  Country: None (occurrence: None)
  Receive Date: 20111102
  Receipt Date: 20111020
  Transmission Date: 20120403
  Serious: Yes (Hospitalization, Other)
  Sender: FDA-Public Use
  Company Number: FR-PFIZER INC-2011265579

PATIENT
  Sex: Female

DRUGS (2)
  1. PROPRANOLOL [Suspect]
     Dosage: 160 MG, 2X/DAY
     Route: 064
     Dates: start: 20090628, end: 20100127
  2. FLECAINIDE ACETATE [Suspect]
     Dosage: .5 DF, 1X/DAY
     Route: 064
     Dates: start: 20090628, end: 20100127

REACTIONS (8)
  - RESPIRATORY DISTRESS [None]
  - JAUNDICE [None]
  - CAESAREAN SECTION [None]
  - MATERNAL EXPOSURE DURING PREGNANCY [None]
  - JAUNDICE NEONATAL [None]
  - MATERNAL DRUGS AFFECTING FOETUS [None]
  - PREMATURE BABY [None]
  - FOETAL GROWTH RESTRICTION [None]
